FAERS Safety Report 17532942 (Version 2)
Quarter: 2020Q2

REPORT INFORMATION
  Report Type: Spontaneous
  Country: DE (occurrence: DE)
  Receive Date: 20200312
  Receipt Date: 20200422
  Transmission Date: 20200713
  Serious: Yes (Death, Hospitalization)
  Sender: FDA-Public Use
  Company Number: NVSC2020DE067296

PATIENT
  Age: 83 Year
  Sex: Male
  Weight: 73 kg

DRUGS (3)
  1. PEGFILGRASTIM [Suspect]
     Active Substance: PEGFILGRASTIM
     Indication: PRODUCT USED FOR UNKNOWN INDICATION
     Dosage: 6 MG, QD (FIRST CYCLE)
     Route: 058
     Dates: start: 20191003
  2. PEGFILGRASTIM [Suspect]
     Active Substance: PEGFILGRASTIM
     Dosage: 6 MG, QD(3RD CYCLE  )
     Route: 058
     Dates: start: 20191121
  3. PEGFILGRASTIM [Suspect]
     Active Substance: PEGFILGRASTIM
     Dosage: UNK, QD (2ND CYCLE)
     Route: 058
     Dates: start: 20191031

REACTIONS (4)
  - Clostridium difficile colitis [Fatal]
  - Pyrexia [Recovered/Resolved]
  - Infection [Recovered/Resolved]
  - Intestinal perforation [Fatal]

NARRATIVE: CASE EVENT DATE: 20191209
